FAERS Safety Report 5345163-9 (Version None)
Quarter: 2007Q2

REPORT INFORMATION
  Report Type: 
  Country: None (occurrence: None)
  Receive Date: 20070601
  Receipt Date: 20070523
  Transmission Date: 20071010
  Serious: Yes (Hospitalization)
  Sender: FDA-Public Use
  Company Number: 2007BI011312

PATIENT
  Age: 54 Year
  Sex: Female

DRUGS (2)
  1. AVONEX [Suspect]
     Indication: MULTIPLE SCLEROSIS
     Dosage: ;IM
     Route: 030
     Dates: start: 19990109, end: 20020830
  2. AVONEX [Suspect]
     Indication: MULTIPLE SCLEROSIS
     Dosage: ;IM
     Route: 030
     Dates: start: 20020830

REACTIONS (2)
  - DIALYSIS [None]
  - RESPIRATORY DISTRESS [None]
